FAERS Safety Report 14684567 (Version 1)
Quarter: 2018Q1

REPORT INFORMATION
  Report Type: Report from Study
  Country: BR (occurrence: BR)
  Receive Date: 20180327
  Receipt Date: 20180327
  Transmission Date: 20180509
  Serious: Yes (Disabling, Other)
  Sender: FDA-Public Use
  Company Number: BR-JNJFOC-20180330030

PATIENT
  Sex: Female
  Weight: 46 kg

DRUGS (10)
  1. SIMPONI [Suspect]
     Active Substance: GOLIMUMAB
     Indication: RHEUMATOID ARTHRITIS
     Route: 058
     Dates: start: 20130607
  2. PROPANOLOL [Concomitant]
     Active Substance: PROPRANOLOL HYDROCHLORIDE
     Route: 065
  3. VASOGARD [Concomitant]
     Active Substance: CILOSTAZOL
     Route: 065
  4. HIGROTON [Concomitant]
     Active Substance: CHLORTHALIDONE
     Route: 065
  5. VENLAFAXINE [Concomitant]
     Active Substance: VENLAFAXINE HYDROCHLORIDE
     Route: 065
  6. CALCIUM [Concomitant]
     Active Substance: CALCIUM
     Route: 065
  7. SIMVASTATIN. [Concomitant]
     Active Substance: SIMVASTATIN
     Route: 065
  8. DEPURA [Concomitant]
     Active Substance: CHOLECALCIFEROL
     Route: 065
  9. OMEPRAZOLE. [Concomitant]
     Active Substance: OMEPRAZOLE
     Route: 065
  10. PRESSAT [Concomitant]
     Active Substance: AMLODIPINE BESYLATE
     Route: 065

REACTIONS (5)
  - Arthritis infective [Unknown]
  - Arthropathy [Not Recovered/Not Resolved]
  - Bone pain [Unknown]
  - Pneumonia [Recovered/Resolved]
  - Inappropriate schedule of drug administration [Unknown]
